APPROVED DRUG PRODUCT: SODIUM CHLORIDE 23.4%
Active Ingredient: SODIUM CHLORIDE
Strength: 400MEQ/100ML (4MEQ/ML)
Dosage Form/Route: SOLUTION;INTRAVENOUS
Application: A212070 | Product #003 | TE Code: AP
Applicant: FRESENIUS KABI USA LLC
Approved: Feb 14, 2022 | RLD: No | RS: No | Type: RX